FAERS Safety Report 9207070 (Version 2)
Quarter: 2013Q2

REPORT INFORMATION
  Report Type: Report from Study
  Country: US (occurrence: US)
  Receive Date: 20130403
  Receipt Date: 20130508
  Transmission Date: 20140414
  Serious: Yes (Hospitalization)
  Sender: FDA-Public Use
  Company Number: PHEH2013US007359

PATIENT
  Sex: Male

DRUGS (2)
  1. FANAPT [Suspect]
     Dosage: 8 MG UNK
  2. NEORAL [Concomitant]
     Dosage: UNK UKN, UNK

REACTIONS (2)
  - Psychotic disorder [Unknown]
  - Drug ineffective [Unknown]
